FAERS Safety Report 7274981-5 (Version None)
Quarter: 2011Q1

REPORT INFORMATION
  Report Type: 
  Country: None (occurrence: None)
  Receive Date: 20110202
  Receipt Date: 20110202
  Transmission Date: 20110831
  Serious: Yes (Other)
  Sender: FDA-Public Use
  Company Number: None

PATIENT
  Sex: Male
  Weight: 87.9978 kg

DRUGS (1)
  1. LAMICTAL [Suspect]
     Indication: AFFECTIVE DISORDER
     Dosage: 200MG ORALLY ONCE DAILY
     Route: 048
     Dates: start: 20100730, end: 20101201

REACTIONS (3)
  - RASH PAPULAR [None]
  - SKIN ULCER [None]
  - RASH PRURITIC [None]
